FAERS Safety Report 21435623 (Version 1)
Quarter: 2022Q4

REPORT INFORMATION
  Report Type: Spontaneous
  Country: US (occurrence: US)
  Receive Date: 20221010
  Receipt Date: 20221010
  Transmission Date: 20230113
  Serious: No
  Sender: FDA-Public Use
  Company Number: US-PFIZER INC-PV202200077718

PATIENT
  Age: 49 Year
  Sex: Female
  Weight: 71.67 kg

DRUGS (3)
  1. METHYLPREDNISOLONE [Suspect]
     Active Substance: METHYLPREDNISOLONE
     Indication: Premedication
     Dosage: 16 MG (2 TABLETS 12 HOURS BEFORE THE PROCEDURE AND 2 TABLETS 10 HOURS AFTER THAT)
     Route: 048
     Dates: start: 20220925
  2. LACTOSE [Suspect]
     Active Substance: LACTOSE
     Dosage: UNK
  3. CALCIUM STEARATE [Suspect]
     Active Substance: CALCIUM STEARATE
     Dosage: UNK

REACTIONS (6)
  - Off label use [Unknown]
  - Reaction to excipient [Recovered/Resolved]
  - Urticaria [Recovered/Resolved]
  - Heart rate increased [Recovered/Resolved]
  - Respiration abnormal [Recovered/Resolved]
  - Oropharyngeal discomfort [Recovered/Resolved]

NARRATIVE: CASE EVENT DATE: 20220925
